FAERS Safety Report 7286687-7 (Version None)
Quarter: 2011Q1

REPORT INFORMATION
  Report Type: 
  Country: None (occurrence: None)
  Receive Date: 20110210
  Receipt Date: 20110125
  Transmission Date: 20110831
  Serious: Yes (Hospitalization)
  Sender: FDA-Public Use
  Company Number: JP-CTI_01304_2011

PATIENT
  Sex: Male

DRUGS (10)
  1. AMBROXOL HYDROCHLORIDE [Concomitant]
     Indication: SPUTUM RETENTION
     Dosage: DF
     Route: 048
     Dates: start: 20090525, end: 20090527
  2. LEVOFLOXACIN HYDRATE [Concomitant]
     Indication: BACTERIAL INFECTION
     Dosage: DF
     Route: 048
     Dates: start: 20090518, end: 20090523
  3. MEIACT MS (CEFDITOREN PIVOXIL) [Suspect]
     Indication: BACTERIAL INFECTION
     Dosage: DF
     Route: 048
     Dates: start: 20090525, end: 20090529
  4. DEQUALINIUM CHLORIDE [Concomitant]
     Indication: ANTIBIOTIC PROPHYLAXIS
     Dosage: DF
     Route: 048
     Dates: start: 20090524, end: 20090525
  5. PRANOPROFEN [Concomitant]
     Indication: PAIN
     Dosage: DF
     Route: 048
     Dates: start: 20090524, end: 20090525
  6. TRANEXAMIC ACID [Concomitant]
     Indication: INFLAMMATION
     Dosage: DF
     Route: 048
     Dates: start: 20090524, end: 20090525
  7. PRANOPROFEN [Concomitant]
     Indication: PYREXIA
     Dosage: DF
     Route: 048
     Dates: start: 20090524, end: 20090525
  8. MUCODYNE (L-CARBOCISTEINE) [Suspect]
     Indication: SPUTUM RETENTION
     Dosage: DF
     Route: 048
     Dates: start: 20090518, end: 20090523
  9. CHINESE HERBAL MEDICINE (MAO-BUSHI-SAISHIN-TO) [Suspect]
     Indication: MALAISE
     Dosage: DF
     Route: 048
     Dates: start: 20090518, end: 20090523
  10. CEFDINIR [Concomitant]
     Indication: BACTERIAL INFECTION
     Dosage: DF
     Route: 048
     Dates: start: 20090524, end: 20090525

REACTIONS (6)
  - PARAESTHESIA [None]
  - RASH [None]
  - STEVENS-JOHNSON SYNDROME [None]
  - LIP SWELLING [None]
  - LIP PAIN [None]
  - PYREXIA [None]
